FAERS Safety Report 6600715-0 (Version None)
Quarter: 2010Q1

REPORT INFORMATION
  Report Type: 
  Country: None (occurrence: None)
  Receive Date: 20100223
  Receipt Date: 20100223
  Transmission Date: 20100710
  Serious: Yes (Other)
  Sender: FDA-Public Use
  Company Number: None

PATIENT
  Age: 50 Year
  Sex: Female
  Weight: 73.4827 kg

DRUGS (1)
  1. LEVAQUIN [Suspect]
     Indication: SINUSITIS
     Dosage: 1 DAY PO
     Route: 048
     Dates: start: 20090814, end: 20090819

REACTIONS (8)
  - CONDITION AGGRAVATED [None]
  - INSOMNIA [None]
  - JOINT SPRAIN [None]
  - LIGAMENT DISORDER [None]
  - PAIN IN EXTREMITY [None]
  - PLANTAR FASCIITIS [None]
  - TENDON DISORDER [None]
  - WEIGHT INCREASED [None]
